FAERS Safety Report 20056667 (Version 2)
Quarter: 2021Q4

REPORT INFORMATION
  Report Type: Spontaneous
  Country: US (occurrence: US)
  Receive Date: 20211111
  Receipt Date: 20211115
  Transmission Date: 20220303
  Serious: No
  Sender: FDA-Public Use
  Company Number: US-NOVARTISTESTPH-NVSC2021US258338

PATIENT
  Age: 72 Year
  Sex: Female

DRUGS (1)
  1. VOLTAREN [Suspect]
     Active Substance: DICLOFENAC SODIUM
     Indication: Arthralgia
     Dosage: UNK
     Route: 065
     Dates: start: 20211103, end: 20211104

REACTIONS (2)
  - Drug effective for unapproved indication [Recovering/Resolving]
  - Product use in unapproved indication [Recovering/Resolving]
